FAERS Safety Report 4356176-8 (Version None)
Quarter: 2004Q2

REPORT INFORMATION
  Report Type: 
  Country: None (occurrence: None)
  Receive Date: 20040506
  Receipt Date: 20040426
  Transmission Date: 20050107
  Serious: Yes (Hospitalization)
  Sender: FDA-Public Use
  Company Number: GB-JNJFOC-20040405467

PATIENT
  Age: 54 Year
  Sex: Female

DRUGS (6)
  1. REMICADE [Suspect]
     Indication: RHEUMATOID ARTHRITIS
     Dosage: 235 MG, INTRAVENOUS
     Route: 042
     Dates: start: 20030414, end: 20040302
  2. PREDNISOLONE [Concomitant]
  3. METHOTREXATE [Concomitant]
  4. CO-DYDRAMOL (PARAMOL-118) [Concomitant]
  5. RANITIDINE [Concomitant]
  6. FOLIC ACID [Concomitant]

REACTIONS (4)
  - CONDITION AGGRAVATED [None]
  - INFLUENZA LIKE ILLNESS [None]
  - JOINT EFFUSION [None]
  - RHEUMATOID ARTHRITIS [None]
